FAERS Safety Report 8814319 (Version 2)
Quarter: 2013Q2

REPORT INFORMATION
  Report Type: Spontaneous
  Country: FR (occurrence: None)
  Receive Date: 20120925
  Receipt Date: 20130523
  Transmission Date: 20140414
  Serious: Yes (Hospitalization)
  Sender: FDA-Public Use
  Company Number: DSA_59782_2012

PATIENT
  Age: 58 Year
  Sex: Female

DRUGS (13)
  1. FLAGYL [Suspect]
     Indication: CLOSTRIDIUM DIFFICILE COLITIS
     Route: 048
     Dates: start: 20120730, end: 20120808
  2. SMECTA [Suspect]
     Indication: CLOSTRIDIUM DIFFICILE COLITIS
     Route: 048
     Dates: start: 20120730
  3. TIORFAN [Suspect]
     Indication: CLOSTRIDIUM DIFFICILE COLITIS
     Route: 048
     Dates: start: 20120730
  4. SACCHAROMYCES [Suspect]
     Indication: CLOSTRIDIUM DIFFICILE COLITIS
     Route: 048
     Dates: start: 20120730
  5. SKENAN [Concomitant]
  6. IMUREL /00001501/ [Concomitant]
  7. HUMIRA [Concomitant]
  8. COAPROVEL [Concomitant]
  9. LERCAN [Concomitant]
  10. AVLOCARDYL /00030001/ [Concomitant]
  11. PRAVASTATINE [Concomitant]
  12. DEROXAT [Concomitant]
  13. DITROPAN [Concomitant]

REACTIONS (9)
  - Neutropenia [None]
  - Dyspnoea [None]
  - Ascites [None]
  - Jaundice [None]
  - Renal failure acute [None]
  - Confusional state [None]
  - Somnolence [None]
  - Sepsis [None]
  - Enterobacter infection [None]
